FAERS Safety Report 17621190 (Version 1)
Quarter: 2020Q2

REPORT INFORMATION
  Report Type: Spontaneous
  Country: GB (occurrence: GB)
  Receive Date: 20200403
  Receipt Date: 20200403
  Transmission Date: 20200713
  Serious: Yes (Other)
  Sender: FDA-Public Use
  Company Number: GB-TEVA-2020-GB-1217147

PATIENT
  Age: 47 Year
  Sex: Male
  Weight: 82.55 kg

DRUGS (9)
  1. FLUTIFORM [Concomitant]
     Active Substance: FLUTICASONE PROPIONATE\FORMOTEROL FUMARATE
     Dosage: 125MICROGRAMS/DOSE / 5MICROGRAMS/DOSE. 4 DF
     Route: 055
     Dates: start: 20200103
  2. FLUOXETINE [Concomitant]
     Active Substance: FLUOXETINE HYDROCHLORIDE
     Dosage: FOR 2 WEEKS; UNIT DOSE: 20 MG
     Dates: start: 20200109
  3. DIAZEPAM. [Concomitant]
     Active Substance: DIAZEPAM
     Dosage: AS DIRECTED. 2 MG, 5 MG.
     Dates: start: 20191230
  4. DOSULEPIN HYDROCHLORIDE [Concomitant]
     Active Substance: DOTHIEPIN HYDROCHLORIDE
     Dosage: 25 MG AT NIGHT, AS PRESCRIBED BY HOSPITAL.
     Dates: start: 20200103
  5. AMOXICILLIN. [Concomitant]
     Active Substance: AMOXICILLIN
     Dosage: 1500 MG
     Dates: start: 20200220
  6. RISPERIDONE. [Concomitant]
     Active Substance: RISPERIDONE
     Dosage: 1 MILLIGRAM DAILY; 1 MG AT NIGHT.
     Dates: start: 20200109
  7. CO-DYDRAMOL [Concomitant]
     Active Substance: ACETAMINOPHEN\DIHYDROCODEINE
     Dosage: TAKE ONE OR TWO UP TO FOUR TIMES DAILY. MAXIMUM 8 IN 24 HOURS. 10MG/500MG TABLETS
     Dates: start: 20200210
  8. DOXYCYCLINE. [Suspect]
     Active Substance: DOXYCYCLINE
     Dosage: 100 MG
     Route: 048
  9. RISPERIDONE. [Concomitant]
     Active Substance: RISPERIDONE
     Dosage: 6 MG AT NIGHT.
     Dates: start: 20200109

REACTIONS (3)
  - Chest discomfort [Recovered/Resolved]
  - Confusional state [Recovered/Resolved]
  - Headache [Recovered/Resolved]

NARRATIVE: CASE EVENT DATE: 20200219
